FAERS Safety Report 21994681 (Version 1)
Quarter: 2023Q1

REPORT INFORMATION
  Report Type: Spontaneous
  Country: CN (occurrence: CN)
  Receive Date: 20230215
  Receipt Date: 20230215
  Transmission Date: 20230418
  Serious: Yes (Other)
  Sender: FDA-Public Use
  Company Number: CN-PFIZER INC-PV202300027708

PATIENT
  Age: 37 Year
  Sex: Female
  Weight: 56 kg

DRUGS (4)
  1. CYTARABINE [Suspect]
     Active Substance: CYTARABINE
     Indication: Chemotherapy
     Dosage: 2.5 G, 2X/DAY
     Route: 041
     Dates: start: 20230131, end: 20230202
  2. CYTARABINE [Suspect]
     Active Substance: CYTARABINE
     Indication: Acute promyelocytic leukaemia
  3. GLUTATHIONE [Concomitant]
     Active Substance: GLUTATHIONE
     Indication: Therapeutic procedure
     Dosage: 1.2 G, 1X/DAY
     Route: 041
     Dates: start: 20230131, end: 20230131
  4. GRANISETRON HYDROCHLORIDE [Concomitant]
     Active Substance: GRANISETRON HYDROCHLORIDE
     Indication: Antiemetic supportive care
     Dosage: 3 MG, 1X/DAY
     Route: 041
     Dates: start: 20230131, end: 20230202

REACTIONS (2)
  - Pyrexia [Recovering/Resolving]
  - Temperature intolerance [Unknown]

NARRATIVE: CASE EVENT DATE: 20230201
